FAERS Safety Report 7803311-2 (Version None)
Quarter: 2011Q4

REPORT INFORMATION
  Report Type: 
  Country: None (occurrence: None)
  Receive Date: 20111007
  Receipt Date: 20110929
  Transmission Date: 20120403
  Serious: Yes (Hospitalization)
  Sender: FDA-Public Use
  Company Number: US-US-EMD SERONO, INC.-7017073

PATIENT
  Sex: Female
  Weight: 64 kg

DRUGS (2)
  1. REBIF [Suspect]
     Indication: MULTIPLE SCLEROSIS
     Route: 058
     Dates: start: 20060913
  2. IBUPROFEN [Concomitant]
     Indication: PREMEDICATION

REACTIONS (6)
  - CYSTITIS [None]
  - DIARRHOEA [None]
  - MULTIPLE SCLEROSIS RELAPSE [None]
  - URINARY TRACT INFECTION [None]
  - INJECTION SITE MASS [None]
  - INJECTION SITE ERYTHEMA [None]
